FAERS Safety Report 9319583 (Version 9)
Quarter: 2016Q1

REPORT INFORMATION
  Report Type: Spontaneous
  Country: US (occurrence: US)
  Receive Date: 20130530
  Receipt Date: 20160318
  Transmission Date: 20160526
  Serious: Yes (Hospitalization, Other)
  Sender: FDA-Public Use
  Company Number: US-GLAXOSMITHKLINE-A1009358A

PATIENT
  Age: 36 Year
  Sex: Female

DRUGS (11)
  1. FLOLAN [Suspect]
     Active Substance: EPOPROSTENOL SODIUM
     Dosage: UNK
     Dates: start: 20110927
  2. XARELTO [Concomitant]
     Active Substance: RIVAROXABAN
  3. OPSUMIT [Suspect]
     Active Substance: MACITENTAN
     Indication: PRODUCT USED FOR UNKNOWN INDICATION
  4. REVATIO [Concomitant]
     Active Substance: SILDENAFIL CITRATE
  5. FLOLAN [Suspect]
     Active Substance: EPOPROSTENOL SODIUM
     Dosage: 47 NG/KG/MIN CONTINUOUS, CONCENTRATION: 60,000 NG/ML, PUMP RATE: 72 ML/DAY, VIAL STRENGTH: 1.5 MG
     Route: 042
     Dates: start: 20110927
  6. FLOLAN [Suspect]
     Active Substance: EPOPROSTENOL SODIUM
     Dosage: 47 NG/KG/MIN CONTINUOUS, CONCENTRATION: 60,000 NG/ML, PUMP RATE: 72 ML/DAY, VIAL STRENGTH: 1.5 MG
     Route: 042
     Dates: start: 20110926
  7. FLOLAN [Suspect]
     Active Substance: EPOPROSTENOL SODIUM
     Dosage: 47 NG/KG/MIN CONTINUOUS, CONCENTRATION: 60,000 NG/ML, PUMP RATE: 72 ML/DAY, VIAL STRENGTH: 1.5 MG
     Route: 042
     Dates: start: 20110926
  8. COUMADIN [Concomitant]
     Active Substance: WARFARIN SODIUM
  9. FLOLAN [Suspect]
     Active Substance: EPOPROSTENOL SODIUM
     Indication: PULMONARY ARTERIAL HYPERTENSION
     Dosage: 47 NG/KG/MIN, CONCENTRATION 60,000 NG/ML, VIAL STRENGTH 1.5 MG CONTINUOUS
     Route: 042
     Dates: start: 20110926
  10. FLOLAN [Suspect]
     Active Substance: EPOPROSTENOL SODIUM
     Dosage: 47 NG/KG/MIN, CONTINOUSLY
     Route: 042
     Dates: start: 20110926
  11. FLOLAN [Suspect]
     Active Substance: EPOPROSTENOL SODIUM
     Dosage: UNK
     Dates: start: 20110927

REACTIONS (12)
  - Device related infection [Unknown]
  - Cough [Unknown]
  - Skin infection [Unknown]
  - Catheter site erythema [Unknown]
  - Infection [Not Recovered/Not Resolved]
  - Hospitalisation [Unknown]
  - Bronchitis [Unknown]
  - Central venous catheterisation [Unknown]
  - Catheter site pain [Unknown]
  - Headache [Unknown]
  - Catheter site swelling [Unknown]
  - Heart rate increased [Unknown]

NARRATIVE: CASE EVENT DATE: 201305
